FAERS Safety Report 12246268 (Version 1)
Quarter: 2016Q2

REPORT INFORMATION
  Report Type: Spontaneous
  Country: IT (occurrence: IT)
  Receive Date: 20160407
  Receipt Date: 20160407
  Transmission Date: 20160815
  Serious: Yes (Hospitalization)
  Sender: FDA-Public Use
  Company Number: IT-PFIZER INC-2016196120

PATIENT
  Age: 83 Year
  Sex: Female

DRUGS (2)
  1. CONTROL /00273201/ [Concomitant]
     Active Substance: LORAZEPAM
  2. TAVOR (LORAZEPAM) [Suspect]
     Active Substance: LORAZEPAM
     Dosage: 10 MG, TOTAL
     Route: 048
     Dates: start: 20160321, end: 20160322

REACTIONS (5)
  - Miosis [Unknown]
  - Sopor [Unknown]
  - Intentional overdose [Unknown]
  - Fall [Unknown]
  - Drug abuse [Unknown]

NARRATIVE: CASE EVENT DATE: 20160322
